FAERS Safety Report 24706830 (Version 3)
Quarter: 2025Q1

REPORT INFORMATION
  Report Type: Report from Study
  Country: MY (occurrence: MY)
  Receive Date: 20241206
  Receipt Date: 20250225
  Transmission Date: 20250408
  Serious: Yes (Death, Hospitalization, Other)
  Sender: EXELIXIS
  Company Number: MY-IPSEN Group, Research and Development-2024-20002

PATIENT
  Age: 73 Year
  Sex: Male
  Weight: 54 kg

DRUGS (4)
  1. CABOMETYX [Suspect]
     Active Substance: CABOZANTINIB S-MALATE
     Indication: Renal cell carcinoma
     Dosage: 60 MG, QD
     Route: 048
     Dates: start: 20240725, end: 20240831
  2. CABOMETYX [Suspect]
     Active Substance: CABOZANTINIB S-MALATE
     Dosage: 60 MG, QD
     Route: 048
     Dates: end: 20241026
  3. CABOMETYX [Suspect]
     Active Substance: CABOZANTINIB S-MALATE
     Dosage: 60 MG, QD
     Route: 048
     Dates: end: 202411
  4. CABOMETYX [Suspect]
     Active Substance: CABOZANTINIB S-MALATE
     Dosage: 60 MG, QD
     Route: 048
     Dates: end: 20250204

REACTIONS (13)
  - Swelling [Unknown]
  - Skin hypertrophy [Unknown]
  - Osteonecrosis of jaw [Unknown]
  - Constipation [Unknown]
  - Decreased appetite [Unknown]
  - Abdominal discomfort [Unknown]
  - Dyspepsia [Unknown]
  - Blood sodium decreased [Unknown]
  - Blood albumin decreased [Unknown]
  - Death [Fatal]
  - Peripheral swelling [Recovering/Resolving]
  - Erythema [Recovering/Resolving]
  - Skin exfoliation [Recovering/Resolving]

NARRATIVE: CASE EVENT DATE: 20240831
